FAERS Safety Report 6836297-8 (Version None)
Quarter: 2010Q3

REPORT INFORMATION
  Report Type: 
  Country: None (occurrence: None)
  Receive Date: 20100712
  Receipt Date: 20100712
  Transmission Date: 20110219
  Serious: Yes (Other)
  Sender: FDA-Public Use
  Company Number: None

PATIENT
  Age: 55 Year
  Sex: Male
  Weight: 58.9676 kg

DRUGS (1)
  1. MELOXICAM [Suspect]
     Indication: PAIN IN EXTREMITY
     Dosage: 1 A DAY
     Dates: start: 20100610, end: 20100613

REACTIONS (1)
  - TINNITUS [None]
